FAERS Safety Report 6022926-8 (Version None)
Quarter: 2008Q4

REPORT INFORMATION
  Report Type: 
  Country: None (occurrence: None)
  Receive Date: 20081224
  Receipt Date: 20081224
  Transmission Date: 20090506
  Serious: Yes (Other)
  Sender: FDA-Public Use
  Company Number: None

PATIENT
  Age: 61 Year
  Sex: Female
  Weight: 97.5234 kg

DRUGS (2)
  1. MACROBID [Suspect]
     Indication: URINARY TRACT INFECTION
     Dosage: 100 MG 1 TWICE DAILY
     Dates: start: 20080512, end: 20080516
  2. LEVAQUIN [Suspect]
     Indication: URINARY TRACT INFECTION
     Dosage: 1/2 TABLET DAILY
     Dates: start: 20080516, end: 20080520

REACTIONS (6)
  - ANAPHYLACTIC REACTION [None]
  - BLADDER DISORDER [None]
  - HYPOAESTHESIA [None]
  - PAIN [None]
  - PERIPHERAL SENSORY NEUROPATHY [None]
  - UPPER RESPIRATORY TRACT INFECTION [None]
